FAERS Safety Report 21071045 (Version 1)
Quarter: 2022Q3

REPORT INFORMATION
  Report Type: Spontaneous
  Country: US (occurrence: None)
  Receive Date: 20220712
  Receipt Date: 20220712
  Transmission Date: 20221027
  Serious: Yes (Other)
  Sender: FDA-Public Use
  Company Number: None

PATIENT
  Age: 46 Year
  Sex: Female
  Weight: 94.5 kg

DRUGS (13)
  1. TERBINAFINE HYDROCHLORIDE [Suspect]
     Active Substance: TERBINAFINE HYDROCHLORIDE
     Indication: Onychomycosis
     Dosage: OTHER QUANTITY : 45 TABLET(S);?FREQUENCY : DAILY;?
     Route: 048
     Dates: start: 20220421, end: 20220711
  2. OMEPRAZOLE [Concomitant]
     Active Substance: OMEPRAZOLE
  3. MELOXICAM [Concomitant]
     Active Substance: MELOXICAM
  4. MECLIZINE [Concomitant]
     Active Substance: MECLIZINE HYDROCHLORIDE
  5. NURTEC ODT [Concomitant]
     Active Substance: RIMEGEPANT SULFATE
  6. ONDANSETRON [Concomitant]
     Active Substance: ONDANSETRON
  7. VITAMINS [Concomitant]
     Active Substance: VITAMINS
  8. VITAMIN C [Concomitant]
     Active Substance: ASCORBIC ACID
  9. VITAMIN D3 [Concomitant]
     Active Substance: CHOLECALCIFEROL
  10. METAMUCIL [Concomitant]
     Active Substance: PLANTAGO SEED
  11. MAGNESIUM [Concomitant]
     Active Substance: MAGNESIUM
  12. MELATONIN [Concomitant]
     Active Substance: MELATONIN
  13. various Young Living essential oils [Concomitant]

REACTIONS (17)
  - Mood altered [None]
  - Emotional disorder [None]
  - Post-traumatic stress disorder [None]
  - Depression [None]
  - Mood swings [None]
  - Irritability [None]
  - Agitation [None]
  - Anger [None]
  - Decreased interest [None]
  - Anxiety [None]
  - Lethargy [None]
  - Restlessness [None]
  - Crying [None]
  - Apathy [None]
  - Asthenia [None]
  - Abnormal dreams [None]
  - Libido decreased [None]

NARRATIVE: CASE EVENT DATE: 20220427
